FAERS Safety Report 9739093 (Version 1)
Quarter: 2013Q4

REPORT INFORMATION
  Report Type: Spontaneous
  Country: US (occurrence: US)
  Receive Date: 20131209
  Receipt Date: 20131209
  Transmission Date: 20140711
  Serious: No
  Sender: FDA-Public Use
  Company Number: US-009507513-1312USA002244

PATIENT
  Sex: Male

DRUGS (2)
  1. JANUMET XR [Suspect]
     Indication: DIABETES MELLITUS
     Dosage: TWO 50MG/1000MG TABLETS, TAKEN AT NIGHT
     Route: 048
     Dates: start: 20131120, end: 20131203
  2. INSULIN [Concomitant]
     Dosage: UNK

REACTIONS (2)
  - Blood glucose abnormal [Not Recovered/Not Resolved]
  - Drug ineffective [Unknown]
